FAERS Safety Report 10367422 (Version 1)
Quarter: 2014Q3

REPORT INFORMATION
  Report Type: Spontaneous
  Country: US (occurrence: US)
  Receive Date: 20140807
  Receipt Date: 20140807
  Transmission Date: 20150326
  Serious: Yes (Other)
  Sender: FDA-Public Use
  Company Number: US-AMGEN-USASP2014058548

PATIENT
  Sex: Female
  Weight: 43.08 kg

DRUGS (1)
  1. PROLIA [Suspect]
     Active Substance: DENOSUMAB
     Indication: OSTEOPOROSIS POSTMENOPAUSAL
     Route: 065

REACTIONS (11)
  - Depression [Unknown]
  - Vitamin D deficiency [Unknown]
  - Anxiety [Unknown]
  - Oestrogen deficiency [Unknown]
  - Body height decreased [Unknown]
  - Insomnia [Unknown]
  - Bone density decreased [Unknown]
  - Gastrointestinal disorder [Unknown]
  - Malnutrition [Unknown]
  - Back pain [Unknown]
  - Menopausal symptoms [Unknown]
